FAERS Safety Report 9716658 (Version 1)
Quarter: 2013Q4

REPORT INFORMATION
  Report Type: Spontaneous
  Country: US (occurrence: US)
  Receive Date: 20131127
  Receipt Date: 20131127
  Transmission Date: 20140711
  Serious: Yes (Hospitalization, Other)
  Sender: FDA-Public Use
  Company Number: US-PFIZER INC-2013338343

PATIENT
  Sex: 0

DRUGS (2)
  1. TIKOSYN [Suspect]
     Indication: ATRIAL FIBRILLATION
     Dosage: 500 UG, 2X/DAY
  2. TIKOSYN [Suspect]
     Dosage: 250 UG, 2X/DAY

REACTIONS (1)
  - Electrocardiogram QT prolonged [Unknown]
